FAERS Safety Report 4590729-7 (Version None)
Quarter: 2005Q1

REPORT INFORMATION
  Report Type: 
  Country: None (occurrence: None)
  Receive Date: 20050224
  Receipt Date: 20041203
  Transmission Date: 20050727
  Serious: Yes (Hospitalization)
  Sender: FDA-Public Use
  Company Number: SE-MERCK-0412SWE00006

PATIENT
  Age: 88 Year
  Sex: Male

DRUGS (1)
  1. VIOXX [Suspect]
     Indication: ARTHROPATHY
     Route: 048
     Dates: start: 20020607, end: 20030801

REACTIONS (4)
  - BALANCE DISORDER [None]
  - CHEST PAIN [None]
  - FALL [None]
  - PAIN IN EXTREMITY [None]
